FAERS Safety Report 8387240-4 (Version None)
Quarter: 2012Q2

REPORT INFORMATION
  Report Type: 
  Country: None (occurrence: None)
  Receive Date: 20120525
  Receipt Date: 20120502
  Transmission Date: 20120825
  Serious: Yes (Hospitalization)
  Sender: FDA-Public Use
  Company Number: FR-ROCHE-1065261

PATIENT
  Sex: Female
  Weight: 77.2 kg

DRUGS (8)
  1. EZETIMIBE [Concomitant]
     Indication: DYSLIPIDAEMIA
     Route: 048
     Dates: start: 20060615
  2. SOMATROPIN [Suspect]
     Indication: GROWTH HORMONE DEFICIENCY
     Dates: start: 20030318
  3. ANAFRANIL [Concomitant]
     Indication: DEPRESSION
  4. HYDROCORTISONE [Concomitant]
     Route: 048
     Dates: start: 20030318
  5. LEVOTHYROXINE SODIUM [Concomitant]
     Indication: PRIMARY HYPOTHYROIDISM
     Route: 048
     Dates: start: 20030318
  6. BROMAZEPAM [Suspect]
     Indication: PRODUCT USED FOR UNKNOWN INDICATION
     Route: 048
     Dates: start: 20050707, end: 20100420
  7. FENOFIBRATE [Concomitant]
     Indication: DYSLIPIDAEMIA
     Route: 048
     Dates: start: 20060915
  8. SEROPRAM (FRANCE) [Concomitant]
     Indication: DEPRESSION
     Route: 048
     Dates: start: 20050707, end: 20100420

REACTIONS (1)
  - TOXICITY TO VARIOUS AGENTS [None]
